FAERS Safety Report 16109099 (Version 1)
Quarter: 2019Q1

REPORT INFORMATION
  Report Type: Spontaneous
  Country: US (occurrence: US)
  Receive Date: 20190323
  Receipt Date: 20190323
  Transmission Date: 20190418
  Serious: No
  Sender: FDA-Public Use
  Company Number: US-THERAPEUTICSMD-2019TMD00126

PATIENT
  Sex: Female
  Weight: 63.49 kg

DRUGS (8)
  1. IMVEXXY [Suspect]
     Active Substance: ESTRADIOL
     Indication: VULVOVAGINAL DRYNESS
     Dosage: 10 ?G, 1X/DAY AT NIGHT
     Route: 067
     Dates: start: 201901, end: 201902
  2. UNKNOWN ALLERGY PILL [Concomitant]
  3. VALSARTAN. [Concomitant]
     Active Substance: VALSARTAN
  4. IMVEXXY [Suspect]
     Active Substance: ESTRADIOL
     Dosage: 10 ?G, 2X/WEEK AT NIGHT
     Route: 067
     Dates: start: 201902
  5. IBUPROFEN. [Concomitant]
     Active Substance: IBUPROFEN
  6. VERAPAMIL [Concomitant]
     Active Substance: VERAPAMIL HYDROCHLORIDE
  7. TYLENOL [Concomitant]
     Active Substance: ACETAMINOPHEN
  8. LOW DOSE ASPIRIN [Concomitant]
     Active Substance: ASPIRIN

REACTIONS (4)
  - Vaginal discharge [Not Recovered/Not Resolved]
  - Flatulence [Recovering/Resolving]
  - Abnormal faeces [Not Recovered/Not Resolved]
  - Off label use [Not Recovered/Not Resolved]

NARRATIVE: CASE EVENT DATE: 2019
